FAERS Safety Report 4346297-8 (Version None)
Quarter: 2004Q1

REPORT INFORMATION
  Report Type: 
  Country: None (occurrence: None)
  Receive Date: 20040325
  Receipt Date: 20040107
  Transmission Date: 20041129
  Serious: No
  Sender: FDA-Public Use
  Company Number: USA040155971

PATIENT
  Age: 80 Year
  Sex: Female
  Weight: 68 kg

DRUGS (1)
  1. FORTEO [Suspect]
     Indication: OSTEOPOROSIS
     Dates: start: 20031229

REACTIONS (6)
  - ACCIDENTAL OVERDOSE [None]
  - AGITATION [None]
  - ANXIETY [None]
  - DIZZINESS [None]
  - HEADACHE [None]
  - MEDICATION ERROR [None]
